FAERS Safety Report 10363877 (Version 2)
Quarter: 2014Q3

REPORT INFORMATION
  Report Type: Spontaneous
  Country: ES (occurrence: None)
  Receive Date: 20140801
  Receipt Date: 20140812
  Transmission Date: 20150326
  Serious: Yes (Hospitalization)
  Sender: FDA-Public Use
  Company Number: TPU2014-00185

PATIENT
  Age: 39 Year
  Sex: Male

DRUGS (2)
  1. NOLOTIL (METAMIZOLE MAGNESIUM) [Concomitant]
  2. VERSATIS [Suspect]
     Active Substance: LIDOCAINE
     Indication: NEURALGIA
     Dosage: 1 PLASTER, ONCE, TOPICAL
     Route: 061
     Dates: start: 20140612, end: 20140612

REACTIONS (4)
  - Back pain [None]
  - Presyncope [None]
  - Vomiting [None]
  - Off label use [None]

NARRATIVE: CASE EVENT DATE: 20140612
